FAERS Safety Report 18423899 (Version 1)
Quarter: 2020Q4

REPORT INFORMATION
  Report Type: Spontaneous
  Country: CN (occurrence: CN)
  Receive Date: 20201025
  Receipt Date: 20201025
  Transmission Date: 20210114
  Serious: Yes (Hospitalization, Other)
  Sender: FDA-Public Use
  Company Number: CN-INSUD PHARMA-2010CN00233

PATIENT

DRUGS (13)
  1. GONAL-F [Suspect]
     Active Substance: FOLLITROPIN
     Dosage: 150 IU X 6 DAYS (OVARIAN STIMULATION)
  2. TRIPTORELIN ACETATE [Suspect]
     Active Substance: TRIPTORELIN ACETATE
     Indication: IN VITRO FERTILISATION
     Dosage: 0.1 MG/DAY FOR 14 DAYS (OVARIAN STIMULATION)
  3. GONAL-F [Suspect]
     Active Substance: FOLLITROPIN
     Indication: IN VITRO FERTILISATION
     Dosage: 75 IU X 2 DAYS (OVARIAN STIMULATION)
  4. HCG [Suspect]
     Active Substance: GONADOTROPHIN, CHORIONIC
     Dosage: 10,000 U TO TRIGGER OVULATION (FROZEN TRANSFER)
  5. PROGYNOVA (ESTRADIOL) [Suspect]
     Active Substance: ESTRADIOL
     Indication: IN VITRO FERTILISATION
     Dosage: 2 MG TWICE DAILY (FROZEN TRANSFER)
     Route: 048
  6. OESTROGEL [Suspect]
     Active Substance: ESTRADIOL
     Indication: IN VITRO FERTILISATION
     Dosage: 10 G OF ESTRADIOL GEL EACH DAY (FROZEN TRANSFER)
  7. HCG [Suspect]
     Active Substance: GONADOTROPHIN, CHORIONIC
     Dosage: 10,000 U TO TRIGGER OVULATION (OVARIAN STIMULATION)
  8. UROFOLLITROPIN [Suspect]
     Active Substance: UROFOLLITROPIN
     Dosage: 75 IU ADMINISTRATED ON DAY 9 OF OVARIAN STIMULATION TO INDUCE FINAL OOCYTE MATURATION
  9. DYDROGESTERONE [Suspect]
     Active Substance: DYDROGESTERONE
     Indication: IN VITRO FERTILISATION
     Dosage: 20 MILLIGRAM, BEGINNING ON THE DAY OF BLASTOCYST TRANSFER, FOR LUTEAL PHASE SUPPORT
     Route: 048
  10. HCG [Suspect]
     Active Substance: GONADOTROPHIN, CHORIONIC
     Indication: IN VITRO FERTILISATION
     Dosage: 1,258 MIU/MICROLITER ON DAY 12 AFTER BLASTOCYST TRANSFER
  11. UROFOLLITROPIN [Suspect]
     Active Substance: UROFOLLITROPIN
     Indication: IN VITRO FERTILISATION
     Dosage: 75 IU FROM MENSTRUATION DAY 15 UNTIL THE TRIGGER DAY (FROZEN TRANSFER)
  12. UROFOLLITROPIN [Suspect]
     Active Substance: UROFOLLITROPIN
     Dosage: 75 IU X2 DAYS (OVARIAN STIMULATION)
  13. PROGESTERONE. [Suspect]
     Active Substance: PROGESTERONE
     Indication: IN VITRO FERTILISATION
     Dosage: 60 MILLIGRAM INJECTIONS, BEGINNING ON THE DAY OF BLASTOCYST TRANSFER, FOR LUTEAL PHASE SUPPORT
     Route: 030

REACTIONS (7)
  - Female genital tract tuberculosis [Recovering/Resolving]
  - Disseminated tuberculosis [Recovering/Resolving]
  - Pyrexia [Recovered/Resolved]
  - Hypoproteinaemia [Recovered/Resolved]
  - Vaginal haemorrhage [Recovered/Resolved]
  - Abortion missed [Recovered/Resolved]
  - Anaemia [Recovered/Resolved]
